FAERS Safety Report 5753699-1 (Version None)
Quarter: 2008Q2

REPORT INFORMATION
  Report Type: 
  Country: None (occurrence: None)
  Receive Date: 20080527
  Receipt Date: 20080527
  Transmission Date: 20081010
  Serious: Yes (Hospitalization)
  Sender: FDA-Public Use
  Company Number: None

PATIENT
  Sex: Female
  Weight: 33.6 kg

DRUGS (4)
  1. MERCAPTOPURINE [Suspect]
     Dosage: 1275 MG
  2. METHOTREXATE [Suspect]
     Dosage: 64.5 MG
  3. VINCRISTINE SULFATE [Suspect]
     Dosage: 3.2 MG
  4. DEXAMETHASONE TAB [Suspect]
     Dosage: 65 MG

REACTIONS (11)
  - BLOOD LACTIC ACID INCREASED [None]
  - CEREBRAL HAEMORRHAGE [None]
  - COAGULOPATHY [None]
  - FUNGAL INFECTION [None]
  - HEPATIC FUNCTION ABNORMAL [None]
  - METABOLIC ACIDOSIS [None]
  - MULTI-ORGAN FAILURE [None]
  - NEUTROPENIA [None]
  - PYREXIA [None]
  - RENAL FAILURE [None]
  - SEPTIC SHOCK [None]
